FAERS Safety Report 15968164 (Version 1)
Quarter: 2019Q1

REPORT INFORMATION
  Report Type: Report from Study
  Country: US (occurrence: US)
  Receive Date: 20190215
  Receipt Date: 20190215
  Transmission Date: 20190418
  Serious: Yes (Hospitalization)
  Sender: FDA-Public Use
  Company Number: US-VIFOR (INTERNATIONAL) INC.-VIT-2019-01212

PATIENT
  Age: 77 Year
  Sex: Male

DRUGS (14)
  1. VELTASSA [Suspect]
     Active Substance: PATIROMER
     Indication: HYPERKALAEMIA
     Route: 048
     Dates: start: 20181130, end: 201901
  2. METOPROLOL. [Concomitant]
     Active Substance: METOPROLOL
  3. MOMETASONE [Concomitant]
     Active Substance: MOMETASONE
  4. ASPIRIN. [Concomitant]
     Active Substance: ASPIRIN
  5. ALLOPURINOL. [Concomitant]
     Active Substance: ALLOPURINOL
  6. FUROSEMIDE. [Concomitant]
     Active Substance: FUROSEMIDE
  7. ATORVASTATIN [Concomitant]
     Active Substance: ATORVASTATIN
  8. ULORIC [Concomitant]
     Active Substance: FEBUXOSTAT
  9. TAMSULOSIN [Concomitant]
     Active Substance: TAMSULOSIN
  10. TRETINOIN. [Concomitant]
     Active Substance: TRETINOIN
  11. ESCITALOPRAM [Concomitant]
     Active Substance: ESCITALOPRAM OXALATE
  12. PANTOPRAZOLE [Concomitant]
     Active Substance: PANTOPRAZOLE
  13. PAROXETINE. [Concomitant]
     Active Substance: PAROXETINE
  14. LEVOTHYROXIN [Concomitant]
     Active Substance: LEVOTHYROXINE

REACTIONS (1)
  - Parkinson^s disease [Not Recovered/Not Resolved]

NARRATIVE: CASE EVENT DATE: 20190106
